FAERS Safety Report 24631031 (Version 2)
Quarter: 2024Q4

REPORT INFORMATION
  Report Type: Spontaneous
  Country: IT (occurrence: IT)
  Receive Date: 20241118
  Receipt Date: 20241218
  Transmission Date: 20250115
  Serious: Yes (Other)
  Sender: ALCON
  Company Number: IT-Santen Oy-2024-ITA-011754

PATIENT

DRUGS (5)
  1. ALPHAGAN P [Suspect]
     Active Substance: BRIMONIDINE TARTRATE
     Indication: Product used for unknown indication
     Dosage: UNK
     Route: 065
  2. COSOPT [Suspect]
     Active Substance: DORZOLAMIDE HYDROCHLORIDE\TIMOLOL MALEATE
     Indication: Product used for unknown indication
     Dosage: 2 [DRP] (DROP (1/12 MILLILITRE)), 1 DROP IN EACH EYE 2 TIMES A DAY
     Route: 047
  3. LUMIGAN [Suspect]
     Active Substance: BIMATOPROST
     Indication: Product used for unknown indication
     Dosage: UNK
     Route: 065
  4. LATANOPROST\NETARSUDIL MESYLATE [Suspect]
     Active Substance: LATANOPROST\NETARSUDIL MESYLATE
     Dosage: 2 [DRP] (DROP (1/12 MILLILITRE)), 1 DROP IN EACH EYE IN THE EVENING
     Route: 047
     Dates: start: 20241107
  5. LATANOPROST\NETARSUDIL MESYLATE [Suspect]
     Active Substance: LATANOPROST\NETARSUDIL MESYLATE
     Indication: Glaucoma
     Dosage: 2 [DRP] (DROP (1/12 MILLILITRE)), 1 DROP IN EACH EYE IN THE EVENING
     Route: 047
     Dates: start: 2024, end: 2024

REACTIONS (4)
  - Intraocular pressure increased [Unknown]
  - Cataract [Unknown]
  - Vision blurred [Recovered/Resolved]
  - Drug ineffective [Unknown]

NARRATIVE: CASE EVENT DATE: 20241107
